FAERS Safety Report 7364516-0 (Version None)
Quarter: 2011Q1

REPORT INFORMATION
  Report Type: 
  Country: None (occurrence: None)
  Receive Date: 20110321
  Receipt Date: 20110315
  Transmission Date: 20110831
  Serious: Yes (Other)
  Sender: FDA-Public Use
  Company Number: US-MERCK-1101USA00773

PATIENT
  Age: 64 Year
  Sex: Female

DRUGS (10)
  1. ASPIRIN [Concomitant]
     Route: 065
  2. ZOCOR [Suspect]
     Route: 048
  3. NORVASC [Concomitant]
     Route: 065
  4. WELLBUTRIN SR [Concomitant]
     Route: 065
  5. PLAVIX [Concomitant]
     Route: 065
  6. PREMARIN [Concomitant]
     Route: 065
  7. ZOCOR [Suspect]
     Indication: BLOOD CHOLESTEROL
     Route: 048
     Dates: start: 20060101
  8. DARVOCET-N 100 [Concomitant]
     Route: 065
  9. KLONOPIN [Concomitant]
     Route: 065
  10. ANTIMICROBIAL (UNSPECIFIED) [Concomitant]
     Indication: INFECTION PROPHYLAXIS
     Route: 065

REACTIONS (5)
  - DRUG INEFFECTIVE [None]
  - CORONARY ARTERY DISEASE [None]
  - MYALGIA [None]
  - ARTERIAL DISORDER [None]
  - NASOPHARYNGITIS [None]
